FAERS Safety Report 7471638-2 (Version None)
Quarter: 2011Q1

REPORT INFORMATION
  Report Type: 
  Country: None (occurrence: None)
  Receive Date: 20110302
  Receipt Date: 20101022
  Transmission Date: 20110831
  Serious: Yes (Hospitalization)
  Sender: FDA-Public Use
  Company Number: 163-21880-10102570

PATIENT
  Age: 79 Year
  Sex: Male

DRUGS (2)
  1. REVLIMID [Suspect]
     Indication: MULTIPLE MYELOMA
     Dosage: 25 MG, DAILY 21 ON/7 OFF, PO, 15 MG, DAILY 21 ON/7 OFF, PO
     Route: 048
     Dates: start: 20080912, end: 20081125
  2. REVLIMID [Suspect]
     Indication: MULTIPLE MYELOMA
     Dosage: 25 MG, DAILY 21 ON/7 OFF, PO, 15 MG, DAILY 21 ON/7 OFF, PO
     Route: 048
     Dates: start: 20081126

REACTIONS (4)
  - COUGH [None]
  - RHINORRHOEA [None]
  - HORDEOLUM [None]
  - THROMBOSIS [None]
